FAERS Safety Report 16923262 (Version 1)
Quarter: 2019Q4

REPORT INFORMATION
  Report Type: Spontaneous
  Country: GB (occurrence: GB)
  Receive Date: 20191016
  Receipt Date: 20191016
  Transmission Date: 20200122
  Serious: Yes (Other)
  Sender: FDA-Public Use
  Company Number: GB-TEVA-2019-GB-1120578

PATIENT
  Age: 68 Year
  Sex: Male
  Weight: 105 kg

DRUGS (13)
  1. EZETIMIBE. [Suspect]
     Active Substance: EZETIMIBE
     Dosage: 10 MG
     Dates: start: 20190730
  2. BETAMETHASONE VALERATE. [Concomitant]
     Active Substance: BETAMETHASONE VALERATE
     Dosage: APPLY
     Dates: start: 20181211
  3. MONTELUKAST [Concomitant]
     Active Substance: MONTELUKAST SODIUM
     Dosage: TAKE AT NIGHT
     Dates: start: 20181211
  4. BYDUREON [Concomitant]
     Active Substance: EXENATIDE
     Dosage: 1 DF
     Dates: start: 20181211
  5. SALBUTAMOL [Concomitant]
     Active Substance: ALBUTEROL
     Indication: COUGH
     Dosage: UP TO 4 DFS HOURLY
     Route: 055
     Dates: start: 20181211
  6. DERMOL [Concomitant]
     Active Substance: BENZALKONIUM CHLORIDE\CHLORHEXIDINE HYDROCHLORIDE\ISOPROPYL MYRISTATE\PARAFFIN
     Indication: DRY SKIN
     Dosage: APPLY TO DRY SKIN AND USE AS A SOAP SUBSTITUTE
     Route: 061
     Dates: start: 20181211
  7. IPRATROPIUM BROMIDE. [Concomitant]
     Active Substance: IPRATROPIUM BROMIDE
     Dosage: PUFFS
     Route: 055
     Dates: start: 20181211
  8. HYDROCORTISONE. [Concomitant]
     Active Substance: HYDROCORTISONE
     Indication: SEBORRHOEIC DERMATITIS
     Route: 061
     Dates: start: 20190712, end: 20190726
  9. FEXOFENADINE [Concomitant]
     Active Substance: FEXOFENADINE HYDROCHLORIDE
     Dates: start: 20181211
  10. LANSOPRAZOLE. [Concomitant]
     Active Substance: LANSOPRAZOLE
     Dates: start: 20181211
  11. PREDNISOLONE. [Concomitant]
     Active Substance: PREDNISOLONE
     Dosage: TAKE IN MORNING (STANDBY MEDICINES )
     Dates: start: 20181211
  12. FOSTAIR [Concomitant]
     Active Substance: BECLOMETHASONE\FORMOTEROL
     Dosage: PUFFS
     Route: 055
     Dates: start: 20181211
  13. LISINOPRIL. [Concomitant]
     Active Substance: LISINOPRIL
     Dates: start: 20181211

REACTIONS (3)
  - Muscle spasms [Unknown]
  - Depressed mood [Unknown]
  - Headache [Unknown]
